FAERS Safety Report 9971415 (Version 1)
Quarter: 2014Q1

REPORT INFORMATION
  Report Type: Spontaneous
  Country: US (occurrence: None)
  Receive Date: 20140305
  Receipt Date: 20140305
  Transmission Date: 20141002
  Serious: Yes (Life-Threatening, Hospitalization, Disabling, Other)
  Sender: FDA-Public Use
  Company Number: None

PATIENT
  Age: 50 Year
  Sex: Female
  Weight: 83.92 kg

DRUGS (2)
  1. NITROFURANTOIN MACROCRYSTALS [Suspect]
     Indication: PROPHYLAXIS URINARY TRACT INFECTION
     Dosage: 100 MG/1 PILL ONCE DAILY TAKEN BY MOUTH
  2. NITROFURANTOIN MACROCRYSTALS [Suspect]
     Indication: BLADDER OPERATION
     Dosage: 100 MG/1 PILL ONCE DAILY TAKEN BY MOUTH

REACTIONS (24)
  - Diarrhoea [None]
  - Vomiting [None]
  - Pyrexia [None]
  - Chills [None]
  - Lung disorder [None]
  - Lupus-like syndrome [None]
  - Interstitial lung disease [None]
  - Antibody test positive [None]
  - Dyspnoea [None]
  - Chest discomfort [None]
  - Cough [None]
  - Neuropathy peripheral [None]
  - Arthralgia [None]
  - Myalgia [None]
  - Paraesthesia [None]
  - Hypoaesthesia [None]
  - Burning sensation [None]
  - Burning sensation [None]
  - Asthenia [None]
  - Muscle atrophy [None]
  - Fatigue [None]
  - Pain in extremity [None]
  - Pain in extremity [None]
  - Vitamin B complex deficiency [None]
